FAERS Safety Report 8174704-1 (Version None)
Quarter: 2012Q1

REPORT INFORMATION
  Report Type: 
  Country: None (occurrence: None)
  Receive Date: 20120229
  Receipt Date: 20120224
  Transmission Date: 20120608
  Serious: Yes (Other)
  Sender: FDA-Public Use
  Company Number: US-GLAXOSMITHKLINE-A0967890A

PATIENT
  Age: 4 Year
  Sex: Male

DRUGS (2)
  1. FLOVENT [Suspect]
     Route: 065
  2. ALLEGRA [Suspect]
     Dosage: 1TSP PER DAY
     Route: 048
     Dates: start: 20120101

REACTIONS (2)
  - VISION BLURRED [None]
  - BLINDNESS [None]
